FAERS Safety Report 6945403-6 (Version None)
Quarter: 2010Q3

REPORT INFORMATION
  Report Type: 
  Country: None (occurrence: None)
  Receive Date: 20100827
  Receipt Date: 20100817
  Transmission Date: 20110219
  Serious: Yes (Hospitalization)
  Sender: FDA-Public Use
  Company Number: US-ROCHE-710416

PATIENT
  Sex: Male

DRUGS (2)
  1. PEGINTERFERON ALFA-2A [Suspect]
     Indication: HEPATITIS C
     Route: 065
     Dates: start: 20100401
  2. RIBAVIRIN [Suspect]
     Indication: HEPATITIS C
     Route: 065
     Dates: start: 20100401

REACTIONS (7)
  - FATIGUE [None]
  - HYPERTENSION [None]
  - NEPHROLITHIASIS [None]
  - TINEA PEDIS [None]
  - URTICARIA [None]
  - VIRAL INFECTION [None]
  - WEIGHT DECREASED [None]
